FAERS Safety Report 16146220 (Version 1)
Quarter: 2019Q2

REPORT INFORMATION
  Report Type: Spontaneous
  Country: US (occurrence: US)
  Receive Date: 20190402
  Receipt Date: 20190402
  Transmission Date: 20190711
  Serious: No
  Sender: FDA-Public Use
  Company Number: US-PFIZER INC-2019134662

PATIENT
  Sex: Female

DRUGS (2)
  1. CHANTIX [Suspect]
     Active Substance: VARENICLINE TARTRATE
     Dosage: 1 IN THE MORNING 1 IN THE EVENING
  2. CHANTIX [Suspect]
     Active Substance: VARENICLINE TARTRATE
     Dosage: TOOK BOTH DOSES AT THE SAME TIME

REACTIONS (2)
  - Wrong dose [Unknown]
  - Middle insomnia [Unknown]
